FAERS Safety Report 11640958 (Version 1)
Quarter: 2015Q4

REPORT INFORMATION
  Report Type: Spontaneous
  Country: US (occurrence: None)
  Receive Date: 20151016
  Receipt Date: 20151016
  Transmission Date: 20160304
  Serious: No
  Sender: FDA-Public Use
  Company Number: None

PATIENT
  Age: 42 Year
  Sex: Female
  Weight: 104 kg

DRUGS (5)
  1. DOBUTAMINE [Concomitant]
     Active Substance: DOBUTAMINE\DOBUTAMINE HYDROCHLORIDE
  2. DEFINITY [Suspect]
     Active Substance: PERFLUTREN
     Indication: CARDIAC STRESS TEST
     Route: 042
     Dates: start: 20151015, end: 20151015
  3. ASA [Concomitant]
     Active Substance: ASPIRIN
  4. LISPRO [Concomitant]
     Active Substance: INSULIN LISPRO
  5. INSULIN [Concomitant]
     Active Substance: INSULIN NOS

REACTIONS (1)
  - Back pain [None]

NARRATIVE: CASE EVENT DATE: 20151015
